FAERS Safety Report 7198857-7 (Version None)
Quarter: 2010Q4

REPORT INFORMATION
  Report Type: 
  Country: None (occurrence: None)
  Receive Date: 20101227
  Receipt Date: 20101222
  Transmission Date: 20110411
  Serious: Yes (Hospitalization, Other)
  Sender: FDA-Public Use
  Company Number: BR-ABBOTT-10P-020-0671078-00

PATIENT
  Sex: Female
  Weight: 50 kg

DRUGS (6)
  1. HUMIRA [Suspect]
     Indication: RHEUMATOID ARTHRITIS
     Route: 058
     Dates: end: 20100801
  2. HUMIRA [Suspect]
  3. PLASMIDIA PLASH [Concomitant]
     Indication: CARDIOVASCULAR DISORDER
     Route: 048
  4. PROPRANOLOL [Concomitant]
     Indication: HYPERTENSION
     Route: 048
  5. CLONIDINE HYDROCHLORIDE [Concomitant]
     Indication: HYPERTENSION
     Route: 048
  6. SPIRONOLACTONE [Concomitant]
     Indication: HYPERTENSION
     Route: 048

REACTIONS (3)
  - BONE EROSION [None]
  - INFLAMMATION [None]
  - LIMB ASYMMETRY [None]
